FAERS Safety Report 17505853 (Version 1)
Quarter: 2020Q1

REPORT INFORMATION
  Report Type: Other
  Country: GB (occurrence: GB)
  Receive Date: 20200306
  Receipt Date: 20200306
  Transmission Date: 20200409
  Serious: No
  Sender: FDA-Public Use
  Company Number: GB-LUPIN PHARMACEUTICALS INC.-2019-03343

PATIENT
  Age: 29 Year
  Sex: Female
  Weight: 88 kg

DRUGS (1)
  1. SERTRALINE HYDROCHLORIDE. [Suspect]
     Active Substance: SERTRALINE HYDROCHLORIDE
     Indication: ANXIETY
     Dosage: 50 MILLIGRAM
     Route: 048
     Dates: start: 20190329

REACTIONS (7)
  - Nausea [Recovering/Resolving]
  - Increased appetite [Not Recovered/Not Resolved]
  - Insomnia [Recovered/Resolved]
  - Gastrooesophageal reflux disease [Recovered/Resolved]
  - Fatigue [Recovering/Resolving]
  - Migraine [Recovering/Resolving]
  - Abnormal weight gain [Not Recovered/Not Resolved]
